FAERS Safety Report 8576858 (Version 4)
Quarter: 2015Q2

REPORT INFORMATION
  Report Type: Spontaneous
  Country: GB (occurrence: GB)
  Receive Date: 20120524
  Receipt Date: 20150519
  Transmission Date: 20150821
  Serious: Yes (Hospitalization, Other)
  Sender: FDA-Public Use
  Company Number: GB-RANBAXY-2012RR-56442

PATIENT
  Age: 43 Year
  Sex: Male

DRUGS (7)
  1. CIPROFLOXACIN. [Suspect]
     Active Substance: CIPROFLOXACIN
     Indication: MYCOBACTERIUM FORTUITUM INFECTION
     Dosage: 500 MG, BID, SINCE HOSPITAL DAY 42
     Route: 065
     Dates: start: 2009
  2. CLARITHROMYCIN. [Suspect]
     Active Substance: CLARITHROMYCIN
     Indication: MYCOBACTERIUM FORTUITUM INFECTION
     Dosage: 500 MG, BID, SINCE HOSPITAL DAY 157
     Route: 065
     Dates: start: 2009
  3. CIPROFLOXACIN. [Suspect]
     Active Substance: CIPROFLOXACIN
     Indication: MYCOBACTERIUM FORTUITUM INFECTION
     Dosage: 500 MG, BID, SINCE HOSPITAL DAY 157
     Route: 065
     Dates: start: 2009
  4. CYCLOPHOSPHAMIDE. [Suspect]
     Active Substance: CYCLOPHOSPHAMIDE
     Indication: IMMUNOSUPPRESSION
     Dosage: 100 MG, QD, SINCE HOSPITAL DAY 17
     Route: 048
     Dates: start: 2009
  5. CLARITHROMYCIN. [Suspect]
     Active Substance: CLARITHROMYCIN
     Indication: MYCOBACTERIUM FORTUITUM INFECTION
     Dosage: 500 MG, BID, SINCE HOSPITAL DAY 42
     Route: 065
     Dates: start: 2009
  6. AMIKACIN [Concomitant]
     Active Substance: AMIKACIN
     Indication: PRODUCT USED FOR UNKNOWN INDICATION
     Dosage: 300 MG, BID
     Route: 065
  7. PREDNISOLONE. [Suspect]
     Active Substance: PREDNISOLONE
     Indication: IMMUNOSUPPRESSION
     Dosage: 60 MG, SINCE HOSPITAL DAY 17
     Route: 065

REACTIONS (9)
  - Renal failure [Not Recovered/Not Resolved]
  - Cardiac failure [Not Recovered/Not Resolved]
  - Neutropenic sepsis [Unknown]
  - Respiratory failure [Unknown]
  - Sepsis syndrome [Unknown]
  - Mycobacterium fortuitum infection [Unknown]
  - Bronchopulmonary aspergillosis [Unknown]
  - Liver injury [Unknown]
  - H1N1 influenza [Unknown]

NARRATIVE: CASE EVENT DATE: 2009
